FAERS Safety Report 6844739-7 (Version None)
Quarter: 2010Q3

REPORT INFORMATION
  Report Type: 
  Country: None (occurrence: None)
  Receive Date: 20100715
  Receipt Date: 20100712
  Transmission Date: 20110219
  Serious: Yes (Hospitalization)
  Sender: FDA-Public Use
  Company Number: FR-BRISTOL-MYERS SQUIBB COMPANY-15189020

PATIENT
  Age: 59 Year
  Sex: Female

DRUGS (7)
  1. ORENCIA [Suspect]
     Dosage: LAST INF(24TH):24JUN10
     Route: 042
     Dates: start: 20080618
  2. METOJECT [Suspect]
     Route: 058
     Dates: start: 20080601
  3. CORTANCYL [Concomitant]
  4. SPECIAFOLDINE [Concomitant]
     Dosage: 1DF=2/WEEK
  5. DOLIPRANE [Concomitant]
  6. INIPOMP [Concomitant]
  7. CACIT D3 [Concomitant]

REACTIONS (1)
  - CHOLECYSTITIS ACUTE [None]
